FAERS Safety Report 16211954 (Version 1)
Quarter: 2019Q2

REPORT INFORMATION
  Report Type: Spontaneous
  Country: IN (occurrence: IN)
  Receive Date: 20190418
  Receipt Date: 20190418
  Transmission Date: 20190711
  Serious: Yes (Death, Hospitalization, Other)
  Sender: FDA-Public Use
  Company Number: IN-SA-2019SA107316

PATIENT
  Age: 31 Year
  Sex: Female

DRUGS (4)
  1. PIPERACILLIN/TAZOBACTAM [Concomitant]
     Active Substance: PIPERACILLIN SODIUM\TAZOBACTAM SODIUM
  2. HEPARIN [Concomitant]
     Active Substance: HEPARIN SODIUM
  3. WARFARIN SODIUM. [Suspect]
     Active Substance: WARFARIN SODIUM
     Indication: THROMBOSIS
     Dosage: UNK
  4. RIFAMPICIN [Suspect]
     Active Substance: RIFAMPIN
     Indication: TUBERCULOSIS

REACTIONS (6)
  - Lung infiltration [Fatal]
  - Pyrexia [Fatal]
  - Dyspnoea [Fatal]
  - Thrombocytopenia [Recovering/Resolving]
  - Pulmonary calcification [Fatal]
  - Condition aggravated [Fatal]
